FAERS Safety Report 9523306 (Version 2)
Quarter: 2013Q3

REPORT INFORMATION
  Report Type: Spontaneous
  Country: US (occurrence: US)
  Receive Date: 20130913
  Receipt Date: 20130917
  Transmission Date: 20140515
  Serious: Yes (Other)
  Sender: FDA-Public Use
  Company Number: US-BAYER-2013-109326

PATIENT
  Age: 15 Year
  Sex: Female
  Weight: 57 kg

DRUGS (1)
  1. MIDOL MENSTRUAL COMPLETE FORMULA [Suspect]
     Route: 048

REACTIONS (4)
  - Intentional self-injury [Recovered/Resolved]
  - Intentional drug misuse [Recovered/Resolved]
  - Somnolence [Recovered/Resolved]
  - Abdominal discomfort [Recovered/Resolved]
